FAERS Safety Report 11999800 (Version 1)
Quarter: 2016Q1

REPORT INFORMATION
  Report Type: Spontaneous
  Country: JP (occurrence: JP)
  Receive Date: 20160204
  Receipt Date: 20160204
  Transmission Date: 20160526
  Serious: Yes (Death, Other)
  Sender: FDA-Public Use
  Company Number: JP-ASTELLAS-2016JP001534AA

PATIENT
  Age: 81 Year
  Sex: Female

DRUGS (3)
  1. PRODIF [Suspect]
     Active Substance: FOSFLUCONAZOLE
     Route: 041
     Dates: start: 20151015, end: 20151109
  2. PRODIF [Suspect]
     Active Substance: FOSFLUCONAZOLE
     Indication: CANDIDA INFECTION
     Route: 041
     Dates: start: 20151013, end: 20151014
  3. MICAFUNGIN [Suspect]
     Active Substance: MICAFUNGIN
     Indication: CANDIDA INFECTION
     Route: 041
     Dates: start: 20151023, end: 20151110

REACTIONS (4)
  - Agranulocytosis [Fatal]
  - Nausea [Recovering/Resolving]
  - Altered state of consciousness [Unknown]
  - Electrolyte depletion [Recovering/Resolving]

NARRATIVE: CASE EVENT DATE: 20151107
